FAERS Safety Report 10069629 (Version 2)
Quarter: 2014Q2

REPORT INFORMATION
  Report Type: Report from Study
  Country: JP (occurrence: JP)
  Receive Date: 20140410
  Receipt Date: 20140616
  Transmission Date: 20141212
  Serious: Yes (Hospitalization)
  Sender: FDA-Public Use
  Company Number: JP-SHIRE-JP201401090

PATIENT
  Age: 53 Year
  Sex: Male

DRUGS (21)
  1. 405 (LANTHANUM CARBONATE) [Suspect]
     Indication: HYPERPHOSPHATAEMIA
     Dosage: 750 MG, UNKNOWN
     Route: 048
     Dates: start: 20100222, end: 20100608
  2. 405 (LANTHANUM CARBONATE) [Suspect]
     Dosage: 1500 MG, UNKNOWN
     Route: 048
     Dates: start: 20100609
  3. CARTARETIN [Suspect]
     Indication: HYPERPHOSPHATAEMIA
     Dosage: 1 G, 1X/DAY:QD
     Route: 048
     Dates: end: 20120710
  4. CARTARETIN [Suspect]
     Dosage: 1.5 G, 1X/DAY:QD
     Route: 048
     Dates: start: 20120711, end: 20120903
  5. CARTARETIN [Suspect]
     Dosage: 1.5 G, 1X/DAY:QD
     Route: 048
     Dates: start: 20130206, end: 20130305
  6. CARTARETIN [Suspect]
     Dosage: 0.75 G, 1X/DAY:QD
     Route: 048
     Dates: start: 20130306
  7. ROCALTROL [Suspect]
     Indication: HYPERPARATHYROIDISM SECONDARY
     Dosage: 2.5 ?G, 1X/WEEK
     Route: 041
     Dates: end: 20100408
  8. ROCALTROL [Suspect]
     Dosage: 3 ?G, 1X/WEEK
     Route: 041
     Dates: start: 20100409, end: 20101005
  9. ROCALTROL [Suspect]
     Dosage: 1.5 ?G, 1X/WEEK
     Route: 041
     Dates: start: 20101006, end: 20110407
  10. ROCALTROL [Suspect]
     Dosage: 2 ?G, 1X/WEEK
     Route: 041
     Dates: start: 20110408, end: 20110609
  11. ROCALTROL [Suspect]
     Dosage: 3 ?G, 1X/WEEK
     Route: 041
     Dates: start: 20110610, end: 20130903
  12. ROCALTROL [Suspect]
     Dosage: 2.5 ?G, 1X/WEEK
     Route: 041
     Dates: start: 20130904
  13. REGPARA [Concomitant]
     Indication: HYPERPARATHYROIDISM SECONDARY
     Dosage: 50 MG, UNKNOWN
     Route: 048
  14. METHYCOBAL [Concomitant]
     Indication: PRODUCT USED FOR UNKNOWN INDICATION
     Dosage: 1.5 ?G, UNKNOWN
     Route: 048
  15. SELBEX [Concomitant]
     Indication: PRODUCT USED FOR UNKNOWN INDICATION
     Dosage: 150 MG, UNKNOWN
     Route: 048
  16. PARIET [Concomitant]
     Indication: PRODUCT USED FOR UNKNOWN INDICATION
     Dosage: 10 MG, UNKNOWN
     Route: 048
  17. AMLODIN [Concomitant]
     Indication: HYPERTENSION
     Dosage: 2.5 MG, UNKNOWN
     Route: 048
  18. AMLODIN [Concomitant]
     Dosage: 5 MG, UNKNOWN
     Route: 048
     Dates: start: 20101231
  19. PROMAC                             /01312301/ [Concomitant]
     Indication: PRODUCT USED FOR UNKNOWN INDICATION
     Dosage: 150 MG, UNKNOWN
     Route: 048
  20. DIOVAN [Concomitant]
     Indication: PRODUCT USED FOR UNKNOWN INDICATION
     Dosage: 80 MG, UNKNOWN
     Route: 048
  21. ESPO [Concomitant]
     Indication: PRODUCT USED FOR UNKNOWN INDICATION
     Dosage: 750 IU, 1X/WEEK
     Route: 041

REACTIONS (1)
  - Diverticulum intestinal haemorrhagic [Recovered/Resolved]
